FAERS Safety Report 12355989 (Version 3)
Quarter: 2017Q1

REPORT INFORMATION
  Report Type: Spontaneous
  Country: US (occurrence: US)
  Receive Date: 20160511
  Receipt Date: 20170313
  Transmission Date: 20170428
  Serious: No
  Sender: FDA-Public Use
  Company Number: US-ACTELION-A-NJ2015-118183

PATIENT
  Age: 73 Year
  Sex: Male

DRUGS (17)
  1. BETAMETHASONE. [Concomitant]
     Active Substance: BETAMETHASONE
  2. LEVOTHYROXINE. [Concomitant]
     Active Substance: LEVOTHYROXINE
  3. CALCIUM [Concomitant]
     Active Substance: CALCIUM
  4. DOXAZOSIN MESYLATE. [Concomitant]
     Active Substance: DOXAZOSIN MESYLATE
  5. POTASSIUM [Concomitant]
     Active Substance: POTASSIUM
  6. FISH OIL [Concomitant]
     Active Substance: FISH OIL
  7. ZINC. [Concomitant]
     Active Substance: ZINC
  8. VALCHLOR [Suspect]
     Active Substance: MECHLORETHAMINE
     Indication: MYCOSIS FUNGOIDES
     Dosage: UNK, QD
     Route: 061
     Dates: start: 20140506
  9. ASPIRIN. [Concomitant]
     Active Substance: ASPIRIN
  10. GLUCOSAMINE [Concomitant]
     Active Substance: GLUCOSAMINE
  11. MAGNESIUM [Concomitant]
     Active Substance: MAGNESIUM
  12. NIACIN. [Concomitant]
     Active Substance: NIACIN
  13. MSM [Concomitant]
     Active Substance: DIMETHYL SULFONE
  14. L-ARGININE [Concomitant]
     Active Substance: ARGININE
  15. VITAMIN D3 [Concomitant]
     Active Substance: CHOLECALCIFEROL
  16. MULTIVITAMIN [Concomitant]
     Active Substance: VITAMINS
  17. VITAMIN B12 [Concomitant]
     Active Substance: CYANOCOBALAMIN

REACTIONS (8)
  - Disease progression [Not Recovered/Not Resolved]
  - Mycosis fungoides [Not Recovered/Not Resolved]
  - Pruritus [Not Recovered/Not Resolved]
  - Erythema [Not Recovered/Not Resolved]
  - Skin burning sensation [Recovered/Resolved]
  - Pain [Not Recovered/Not Resolved]
  - Application site erosion [Recovered/Resolved]
  - Rash [Recovered/Resolved]
